FAERS Safety Report 8087757 (Version 6)
Quarter: 2013Q3

REPORT INFORMATION
  Report Type: Report from Study
  Country: US (occurrence: US)
  Receive Date: 20110812
  Receipt Date: 20130715
  Transmission Date: 20140515
  Serious: Yes (Hospitalization)
  Sender: FDA-Public Use
  Company Number: US-BRISTOL-MYERS SQUIBB COMPANY-15957756

PATIENT
  Age: 83 Year
  Sex: Female

DRUGS (4)
  1. PLACEBO [Suspect]
     Indication: TYPE 2 DIABETES MELLITUS
  2. COUMADIN [Suspect]
  3. PLAVIX [Suspect]
  4. ASPIRIN [Suspect]

REACTIONS (3)
  - Vasodilatation [Recovered/Resolved]
  - Rectal haemorrhage [Recovered/Resolved]
  - Lower gastrointestinal haemorrhage [Recovered/Resolved]
